FAERS Safety Report 4884240-3 (Version None)
Quarter: 2005Q4

REPORT INFORMATION
  Report Type: 
  Country: None (occurrence: None)
  Receive Date: 20051201
  Receipt Date: 20050902
  Transmission Date: 20060501
  Serious: No
  Sender: FDA-Public Use
  Company Number: 2005PV001591

PATIENT
  Age: 75 Year
  Sex: Male
  Weight: 104.3273 kg

DRUGS (7)
  1. BYETTA [Suspect]
     Indication: DIABETES MELLITUS NON-INSULIN-DEPENDENT
     Dosage: 5 MCG;BID;SC
     Route: 058
     Dates: start: 20050829
  2. AMARYL [Concomitant]
  3. SYNTHROID [Concomitant]
  4. COREG [Concomitant]
  5. ZETIA [Concomitant]
  6. FLOMAX [Concomitant]
  7. PLAVIX [Concomitant]

REACTIONS (5)
  - CONSTIPATION [None]
  - DIZZINESS [None]
  - FREQUENT BOWEL MOVEMENTS [None]
  - HEADACHE [None]
  - STOMACH DISCOMFORT [None]
